FAERS Safety Report 8494291-8 (Version None)
Quarter: 2012Q2

REPORT INFORMATION
  Report Type: 
  Country: None (occurrence: None)
  Receive Date: 20120628
  Receipt Date: 20120619
  Transmission Date: 20120825
  Serious: Yes (Other)
  Sender: FDA-Public Use
  Company Number: 2012SP033947

PATIENT
  Age: 43 Year
  Sex: Female

DRUGS (6)
  1. VALPROATE SODIUM [Concomitant]
  2. DALMANE [Concomitant]
  3. SERTRALINE HYDROCHLORIDE [Concomitant]
  4. SAPHRIS [Suspect]
     Indication: BIPOLAR DISORDER
     Dosage: 5 MG;QD;SL
     Route: 060
     Dates: start: 20120614
  5. DALMANE [Concomitant]
  6. WELLBUTRIN [Concomitant]

REACTIONS (2)
  - LOSS OF CONSCIOUSNESS [None]
  - DIZZINESS [None]
